FAERS Safety Report 19083937 (Version 1)
Quarter: 2021Q2

REPORT INFORMATION
  Report Type: Spontaneous
  Country: FR (occurrence: FR)
  Receive Date: 20210401
  Receipt Date: 20210401
  Transmission Date: 20210717
  Serious: Yes (Other)
  Sender: FDA-Public Use
  Company Number: FR-TEVA-2021-FR-1895463

PATIENT
  Age: 21 Year
  Sex: Female
  Weight: 56 kg

DRUGS (15)
  1. DIAZEPAM. [Suspect]
     Active Substance: DIAZEPAM
     Indication: EPILEPSY
     Dosage: 5 MG
     Route: 048
     Dates: start: 20190227, end: 20190227
  2. VISIPAQUE [Suspect]
     Active Substance: IODIXANOL
     Indication: SCAN WITH CONTRAST
     Dosage: 90ML
     Route: 042
     Dates: start: 20190305, end: 20190305
  3. KEPPRA [Concomitant]
     Active Substance: LEVETIRACETAM
     Indication: EPILEPSY
     Dosage: UNKNOWN
     Route: 048
     Dates: start: 201901, end: 20190215
  4. LAMICTAL 200 MG, COMPRIME [Concomitant]
     Indication: EPILEPSY
     Dosage: 1 DOSAGE FORMS
     Route: 048
  5. OXYCODONE [Concomitant]
     Active Substance: OXYCODONE
     Indication: PAIN
     Dosage: 10 MG
     Route: 048
     Dates: start: 20190227, end: 20190227
  6. URBANYL 5 MG, GELULE [Concomitant]
     Active Substance: CLOBAZAM
     Indication: EPILEPSY
     Dosage: 1  DOSAGE FORMS
     Route: 048
     Dates: start: 20190227, end: 20190305
  7. GAVISCON, SUSPENSION BUVABLE EN SACHET [Concomitant]
     Indication: GASTROOESOPHAGEAL REFLUX DISEASE
     Dosage: 1 DOSAGE FORMS
     Route: 048
     Dates: start: 20190301, end: 20190301
  8. PARACETAMOL [Concomitant]
     Active Substance: ACETAMINOPHEN
     Indication: PAIN
     Dosage: 1 GRAM
     Route: 048
     Dates: start: 20190227, end: 20190311
  9. ACUPAN [Suspect]
     Active Substance: NEFOPAM HYDROCHLORIDE
     Indication: PAIN
     Dosage: 20 MG
     Route: 048
     Dates: start: 20190228, end: 20190303
  10. KETOPROFENE [Concomitant]
     Active Substance: KETOPROFEN
     Indication: HEADACHE
     Dosage: 100 MG
     Route: 042
     Dates: start: 20190227, end: 20190302
  11. AMITRIPTYLINE [Concomitant]
     Active Substance: AMITRIPTYLINE
     Indication: HEADACHE
     Dosage: 25 MG
     Route: 042
     Dates: start: 20190301, end: 20190305
  12. ENOXAPARINE SODIQUE ((MAMMIFERE/PORC/MUQUEUSE INTESTINALE)) [Suspect]
     Active Substance: ENOXAPARIN SODIUM
     Indication: CARDIOVASCULAR EVENT PROPHYLAXIS
     Dosage: 4000 IU
     Route: 058
     Dates: start: 20190303, end: 20190308
  13. MOVICOL [Concomitant]
     Active Substance: POLYETHYLENE GLYCOL 3350\POTASSIUM CHLORIDE\SODIUM BICARBONATE\SODIUM CHLORIDE
     Indication: CONSTIPATION
     Dosage: 1 DOSAGE FORMS
     Route: 048
     Dates: start: 20190304, end: 20190304
  14. FYCOMPA 4 MG, COMPRIME PELLICULE [Concomitant]
     Indication: EPILEPSY
     Dosage: 1 DOSAGE FORMS
     Route: 048
     Dates: start: 20190215
  15. ZOPHREN 4 MG, COMPRIME PELLICULE [Concomitant]
     Indication: NAUSEA
     Dosage: 1 DOSAGE FORMS
     Route: 048
     Dates: start: 20190302, end: 20190302

REACTIONS (2)
  - Cell death [Recovered/Resolved]
  - Toxic skin eruption [Recovered/Resolved]

NARRATIVE: CASE EVENT DATE: 20190305
